FAERS Safety Report 15638382 (Version 1)
Quarter: 2018Q4

REPORT INFORMATION
  Report Type: Spontaneous
  Country: US (occurrence: US)
  Receive Date: 20181120
  Receipt Date: 20181120
  Transmission Date: 20190205
  Serious: No
  Sender: FDA-Public Use
  Company Number: US-BAUSCH-BL-2018-030484

PATIENT
  Sex: Male

DRUGS (1)
  1. LUMIFY [Suspect]
     Active Substance: BRIMONIDINE TARTRATE
     Indication: ERYTHEMA
     Dosage: ONE DROP IN EACH EYE ONCE.
     Route: 047
     Dates: start: 20181031, end: 2018

REACTIONS (5)
  - Eyelid margin crusting [Unknown]
  - Asthenopia [Unknown]
  - Vision blurred [Unknown]
  - Drug ineffective [Recovered/Resolved]
  - Ocular hyperaemia [Unknown]

NARRATIVE: CASE EVENT DATE: 20181031
